FAERS Safety Report 20120057 (Version 2)
Quarter: 2022Q1

REPORT INFORMATION
  Report Type: Report from Study
  Country: DE (occurrence: None)
  Receive Date: 20211126
  Receipt Date: 20220105
  Transmission Date: 20220424
  Serious: Yes (Hospitalization)
  Sender: FDA-Public Use
  Company Number: DE-ROCHE-2957781

PATIENT
  Age: 66 Year
  Sex: Male
  Weight: 57 kg

DRUGS (24)
  1. ATEZOLIZUMAB [Suspect]
     Active Substance: ATEZOLIZUMAB
     Indication: Malignant neoplasm of unknown primary site
     Route: 041
     Dates: start: 20211027
  2. GEMCITABINE [Suspect]
     Active Substance: GEMCITABINE
     Indication: Malignant neoplasm of unknown primary site
     Dosage: TWICE PER CYCLE (CYCLE = 21 DAYS)
     Route: 042
     Dates: start: 20210924
  3. GEMCITABINE [Suspect]
     Active Substance: GEMCITABINE
     Dosage: TWICE PER CYCLE (CYCLE = 21 DAYS)
     Route: 042
     Dates: start: 20211027
  4. CARBOPLATIN [Suspect]
     Active Substance: CARBOPLATIN
     Indication: Malignant neoplasm of unknown primary site
     Route: 042
     Dates: start: 20210924
  5. PANTOZOL [Concomitant]
     Active Substance: PANTOPRAZOLE SODIUM
     Route: 048
     Dates: start: 20210713
  6. GRANISETRON [Concomitant]
     Active Substance: GRANISETRON
     Route: 048
     Dates: start: 20210924
  7. GRANISETRON [Concomitant]
     Active Substance: GRANISETRON
     Route: 048
     Dates: start: 20211125, end: 20211125
  8. DEXAMETHASONE [Concomitant]
     Active Substance: DEXAMETHASONE
     Indication: Disease progression
     Route: 048
     Dates: start: 20210924
  9. DEXAMETHASONE [Concomitant]
     Active Substance: DEXAMETHASONE
     Route: 048
     Dates: start: 20211127, end: 20211130
  10. DEXAMETHASONE [Concomitant]
     Active Substance: DEXAMETHASONE
     Route: 042
     Dates: start: 20211125, end: 20211125
  11. INNOHEP [Concomitant]
     Active Substance: TINZAPARIN SODIUM
     Route: 058
     Dates: start: 20211015, end: 20211025
  12. METAMIZOL [Concomitant]
     Active Substance: METAMIZOLE SODIUM
     Route: 048
     Dates: start: 20211004
  13. APIXABAN [Concomitant]
     Active Substance: APIXABAN
     Route: 048
     Dates: start: 20211026
  14. FENTANYL [Concomitant]
     Active Substance: FENTANYL
     Dosage: TOTAL: 300
     Route: 062
     Dates: start: 20211026
  15. CAPROS AKUT [Concomitant]
     Indication: Pain
     Route: 048
     Dates: start: 20211026
  16. CAPROS AKUT [Concomitant]
     Route: 048
     Dates: start: 20211122
  17. VOLTAREN [Concomitant]
     Active Substance: DICLOFENAC SODIUM
     Route: 061
     Dates: start: 20211109
  18. DALTEPARIN [Concomitant]
     Active Substance: DALTEPARIN
     Route: 058
     Dates: start: 20211108, end: 20211112
  19. RAMIPRIL [Concomitant]
     Active Substance: RAMIPRIL
     Indication: Hypertension
     Route: 048
     Dates: start: 20211125, end: 20211130
  20. TORSEMIDE [Concomitant]
     Active Substance: TORSEMIDE
     Indication: Oedema peripheral
     Route: 048
     Dates: start: 20211126, end: 20211130
  21. KABIVEN [Concomitant]
     Active Substance: AMINO ACIDS\ANHYDROUS DEXTROSE\CALCIUM CHLORIDE\MAGNESIUM SULFATE HEPTAHYDRATE\POTASSIUM CHLORIDE\SO
     Route: 042
     Dates: start: 20211123, end: 20211130
  22. DIMETHINDENE [Concomitant]
     Active Substance: DIMETHINDENE
     Route: 042
     Dates: start: 20211125, end: 20211125
  23. PACLITAXEL [Concomitant]
     Active Substance: PACLITAXEL
     Route: 042
     Dates: start: 20211125, end: 20211125
  24. TORSEMIDE [Concomitant]
     Active Substance: TORSEMIDE
     Route: 042
     Dates: start: 20211125, end: 20211125

REACTIONS (1)
  - Infection [Recovered/Resolved]

NARRATIVE: CASE EVENT DATE: 20211108
